FAERS Safety Report 12278544 (Version 1)
Quarter: 2016Q2

REPORT INFORMATION
  Report Type: Spontaneous
  Country: US (occurrence: US)
  Receive Date: 20160418
  Receipt Date: 20160418
  Transmission Date: 20160815
  Serious: No
  Sender: FDA-Public Use
  Company Number: US-MEDA-2014060058

PATIENT
  Age: 78 Year
  Sex: Female
  Weight: 61 kg

DRUGS (9)
  1. CALCIUM [Concomitant]
     Active Substance: CALCIUM
     Indication: SUPPLEMENTATION THERAPY
     Route: 048
  2. OMEPRAZOLE. [Concomitant]
     Active Substance: OMEPRAZOLE
     Route: 048
  3. CORTIFOAM [Suspect]
     Active Substance: HYDROCORTISONE ACETATE
     Indication: RECTAL DISCHARGE
     Route: 061
     Dates: start: 201405, end: 2014
  4. ASPIRIN. [Concomitant]
     Active Substance: ASPIRIN
     Route: 048
  5. MAGNESIUM [Concomitant]
     Active Substance: MAGNESIUM
     Indication: SUPPLEMENTATION THERAPY
     Route: 048
  6. METRONIDAZOLE. [Concomitant]
     Active Substance: METRONIDAZOLE
     Indication: ROSACEA
     Dosage: SMALL AMOUNT OF CREAM
     Route: 061
  7. CORTIFOAM [Suspect]
     Active Substance: HYDROCORTISONE ACETATE
     Indication: RECTAL DISCHARGE
     Route: 061
     Dates: start: 201603
  8. VITAMIN D [Concomitant]
     Active Substance: CHOLECALCIFEROL
     Indication: VITAMIN SUPPLEMENTATION
     Route: 048
  9. ATENOLOL. [Concomitant]
     Active Substance: ATENOLOL
     Indication: ARRHYTHMIA
     Route: 048

REACTIONS (5)
  - Weight decreased [Not Recovered/Not Resolved]
  - Decreased appetite [Not Recovered/Not Resolved]
  - White blood cell count decreased [Not Recovered/Not Resolved]
  - Blood pressure decreased [Unknown]
  - Abdominal distension [Unknown]

NARRATIVE: CASE EVENT DATE: 2014
